FAERS Safety Report 18258662 (Version 1)
Quarter: 2020Q3

REPORT INFORMATION
  Report Type: Spontaneous
  Country: DE (occurrence: DE)
  Receive Date: 20200911
  Receipt Date: 20200911
  Transmission Date: 20201103
  Serious: Yes (Hospitalization)
  Sender: FDA-Public Use
  Company Number: NVSC2020DE245966

PATIENT
  Age: 14 Year
  Sex: Female
  Weight: 44 kg

DRUGS (2)
  1. METHYLPHENIDATE. [Suspect]
     Active Substance: METHYLPHENIDATE
     Indication: SUICIDAL IDEATION
     Dosage: 5 DF, QD (UNKLAR, OB LEVOMEPROMAZIN ODER METHYLPHENIDAT EINGENOMMEN WURDE)
     Route: 048
     Dates: end: 20190415
  2. LEVOMEPROMAZINE [Suspect]
     Active Substance: LEVOMEPROMAZINE
     Indication: SUICIDAL IDEATION
     Dosage: 5 DF, QD (UNKLAR, OB LEVOMEPROMAZIN ODER METHYLPHENIDAT EINGENOMMEN WURDE)
     Route: 048
     Dates: end: 20190415

REACTIONS (3)
  - Intentional overdose [Unknown]
  - Somnolence [Unknown]
  - Toxicity to various agents [Unknown]

NARRATIVE: CASE EVENT DATE: 20190415
